FAERS Safety Report 6873332-5 (Version None)
Quarter: 2010Q3

REPORT INFORMATION
  Report Type: 
  Country: None (occurrence: None)
  Receive Date: 20100723
  Receipt Date: 20090401
  Transmission Date: 20110219
  Serious: No
  Sender: FDA-Public Use
  Company Number: US-PFIZER INC-2008151042

PATIENT
  Sex: Male
  Weight: 74.84 kg

DRUGS (4)
  1. CHANTIX [Suspect]
     Indication: SMOKING CESSATION THERAPY
     Dates: start: 20080930, end: 20081118
  2. LIPITOR [Concomitant]
     Dosage: UNK
  3. QUINAPRIL [Concomitant]
     Dosage: UNK
  4. AMLODIPINE [Concomitant]
     Dosage: UNK

REACTIONS (6)
  - INFLUENZA LIKE ILLNESS [None]
  - INSOMNIA [None]
  - NASAL CONGESTION [None]
  - NAUSEA [None]
  - RESPIRATORY TRACT CONGESTION [None]
  - WEIGHT INCREASED [None]
